FAERS Safety Report 9461450 (Version 1)
Quarter: 2013Q3

REPORT INFORMATION
  Report Type: Report from Study
  Country: US (occurrence: US)
  Receive Date: 20130816
  Receipt Date: 20130816
  Transmission Date: 20140515
  Serious: Yes (Other)
  Sender: FDA-Public Use
  Company Number: PHEH2013US014960

PATIENT
  Age: 53 Year
  Sex: Male

DRUGS (11)
  1. TASIGNA [Suspect]
     Indication: CHRONIC MYELOID LEUKAEMIA
     Dosage: 300 MG, BID
     Route: 048
     Dates: start: 20130201
  2. TASIGNA [Suspect]
     Dosage: 150 MG, DAILY
     Route: 048
     Dates: start: 20130625
  3. ALBUTEROL SULFATE [Concomitant]
     Dosage: 90 UG, (TAKE TWO INHALATIONS FOR Q4-6H HOURS)
  4. AMBIEN [Concomitant]
     Dosage: 1 DF, QHS PRN (SLEEP)
     Route: 048
  5. FLONASE [Concomitant]
     Dosage: ONE SPRAY INHALATION AS PER REQUIRED
  6. MIRALAX [Concomitant]
     Dosage: 17 G OF POWDER DAILY AS DIRECTED
     Route: 048
  7. MUCINEX [Concomitant]
     Dosage: 1 DF,DAILY
     Route: 048
  8. PROTONIX [Concomitant]
     Dosage: ONE TABLET DAILY
     Route: 048
  9. TEMAZEPAM [Concomitant]
     Dosage: ONE CAPSULE QHS PRN SLEEP
  10. ZYRTEC [Concomitant]
     Dosage: 1 DF, QD
     Route: 048
  11. HYDROCODONE BITARTRATE AND ACETAMINOPHEN [Concomitant]
     Indication: PAIN
     Dosage: 5-325 MG, ONE DF Q4-6H

REACTIONS (5)
  - Pancreatitis acute [Recovered/Resolved]
  - Amylase increased [Recovered/Resolved]
  - Lipase increased [Recovered/Resolved]
  - Abdominal pain upper [Unknown]
  - Rash pruritic [Recovering/Resolving]
